FAERS Safety Report 7908087-6 (Version None)
Quarter: 2011Q4

REPORT INFORMATION
  Report Type: 
  Country: None (occurrence: None)
  Receive Date: 20111111
  Receipt Date: 20111102
  Transmission Date: 20120403
  Serious: Yes (Other)
  Sender: FDA-Public Use
  Company Number: US-BIOGENIDEC-2011BI042116

PATIENT
  Age: 35 Year
  Sex: Female

DRUGS (2)
  1. TYSABRI [Suspect]
     Indication: MULTIPLE SCLEROSIS
     Route: 042
     Dates: start: 20100910
  2. TYSABRI [Suspect]
     Route: 042
     Dates: start: 20090710, end: 20100302

REACTIONS (7)
  - TONGUE INJURY [None]
  - VISUAL IMPAIRMENT [None]
  - CONVULSION [None]
  - GRAND MAL CONVULSION [None]
  - DEPRESSION [None]
  - POST-TRAUMATIC STRESS DISORDER [None]
  - MEMORY IMPAIRMENT [None]
